FAERS Safety Report 17444633 (Version 2)
Quarter: 2020Q2

REPORT INFORMATION
  Report Type: Report from Study
  Country: IE (occurrence: IE)
  Receive Date: 20200221
  Receipt Date: 20200605
  Transmission Date: 20200713
  Serious: Yes (Other)
  Sender: FDA-Public Use
  Company Number: IE-EMD SERONO-9146897

PATIENT
  Age: 49 Year
  Sex: Female

DRUGS (2)
  1. MAVENCLAD [Suspect]
     Active Substance: CLADRIBINE
     Indication: RELAPSING-REMITTING MULTIPLE SCLEROSIS
     Dosage: YEAR ONE WEEK ONE THERAPY: 2 DOSAGE FORMS ON DAYS 1 TO 3 AND 1 DOSAGE FORM ON DAY 4 AND 5
     Route: 048
     Dates: start: 20200120
  2. MAVENCLAD [Suspect]
     Active Substance: CLADRIBINE
     Dosage: YEAR ONE WEEK FIVE THERAPY: 2 DOSAGE FORMS ON DAYS 1 TO 3 AND 1 DOSAGE FORM ON DAY 4 AND 5
     Route: 048
     Dates: start: 20200217

REACTIONS (3)
  - Kidney infection [Recovered/Resolved]
  - Blood test abnormal [Unknown]
  - Immune system disorder [Unknown]

NARRATIVE: CASE EVENT DATE: 202002
